FAERS Safety Report 15684320 (Version 2)
Quarter: 2018Q4

REPORT INFORMATION
  Report Type: Spontaneous
  Country: GB (occurrence: GB)
  Receive Date: 20181204
  Receipt Date: 20181207
  Transmission Date: 20190205
  Serious: Yes (Death)
  Sender: FDA-Public Use
  Company Number: GB-NAPPMUNDI-GBR-2018-0061967

PATIENT
  Sex: Male

DRUGS (1)
  1. BUTEC [Suspect]
     Active Substance: BUPRENORPHINE
     Indication: ARTHROPATHY
     Dosage: UNK
     Route: 062

REACTIONS (2)
  - Wheezing [Unknown]
  - Pneumonia [Fatal]
